FAERS Safety Report 22721373 (Version 2)
Quarter: 2024Q3

REPORT INFORMATION
  Report Type: Spontaneous
  Country: US (occurrence: US)
  Receive Date: 20230719
  Receipt Date: 20240723
  Transmission Date: 20241016
  Serious: No
  Sender: OTSUKA
  Company Number: US-OTSUKA-2023_003833

PATIENT
  Age: 9 Decade
  Sex: Female

DRUGS (1)
  1. REXULTI [Suspect]
     Active Substance: BREXPIPRAZOLE
     Indication: Musical ear syndrome
     Dosage: 0.5 MG, QD
     Route: 048

REACTIONS (1)
  - Drug effective for unapproved indication [Unknown]
